FAERS Safety Report 10513114 (Version 2)
Quarter: 2014Q4

REPORT INFORMATION
  Report Type: Spontaneous
  Country: AU (occurrence: AU)
  Receive Date: 20141013
  Receipt Date: 20141104
  Transmission Date: 20150528
  Serious: Yes (Other)
  Sender: FDA-Public Use
  Company Number: AU-AMGEN-AUSSP2014078078

PATIENT
  Age: 44 Year

DRUGS (1)
  1. ENBREL [Suspect]
     Active Substance: ETANERCEPT
     Indication: PSORIASIS
     Dosage: UNK
     Route: 065

REACTIONS (5)
  - Diabetes insipidus [Unknown]
  - Malaise [Unknown]
  - Weight decreased [Unknown]
  - Hypothyroidism [Unknown]
  - Emotional distress [Unknown]
